FAERS Safety Report 5253293-5 (Version None)
Quarter: 2007Q1

REPORT INFORMATION
  Report Type: 
  Country: None (occurrence: None)
  Receive Date: 20070301
  Receipt Date: 20070223
  Transmission Date: 20070707
  Serious: Yes (Hospitalization)
  Sender: FDA-Public Use
  Company Number: US-JNJFOC-20070201878

PATIENT
  Sex: Female
  Weight: 94.8 kg

DRUGS (2)
  1. REMICADE [Suspect]
     Indication: CROHN'S DISEASE
     Route: 042
  2. 10 DIFFERENT MEDICATIONS [Concomitant]

REACTIONS (2)
  - COLECTOMY [None]
  - SURGERY [None]
